FAERS Safety Report 6687555-1 (Version None)
Quarter: 2010Q2

REPORT INFORMATION
  Report Type: 
  Country: None (occurrence: None)
  Receive Date: 20100419
  Receipt Date: 20100415
  Transmission Date: 20101027
  Serious: Yes (Hospitalization, Disabling)
  Sender: FDA-Public Use
  Company Number: US-MERCK-0903USA01375

PATIENT
  Age: 51 Year
  Sex: Female
  Weight: 80 kg

DRUGS (7)
  1. FOSAMAX [Suspect]
     Indication: OSTEOPOROSIS PROPHYLAXIS
     Route: 048
     Dates: start: 19980101, end: 20040101
  2. FOSAMAX [Suspect]
     Route: 048
     Dates: start: 20020301, end: 20070601
  3. FOSAMAX [Suspect]
     Indication: OSTEOPOROSIS
     Route: 048
     Dates: start: 19980101, end: 20040101
  4. FOSAMAX [Suspect]
     Route: 048
     Dates: start: 20020301, end: 20070601
  5. PREVACID NAPRAPAC 250 (COPACKAGED) [Concomitant]
     Route: 065
     Dates: start: 20050101
  6. SYNTHROID [Concomitant]
     Route: 065
     Dates: start: 19940101
  7. FOSAMAX PLUS D [Concomitant]
     Indication: OSTEOPOROSIS PROPHYLAXIS
     Route: 048
     Dates: start: 20070601, end: 20081001

REACTIONS (17)
  - BLOOD CHOLESTEROL INCREASED [None]
  - BREAST MASS [None]
  - BUNION [None]
  - BURSITIS [None]
  - DENTAL CARIES [None]
  - DEPRESSION [None]
  - EXOSTOSIS [None]
  - FALL [None]
  - FEMUR FRACTURE [None]
  - FIBROMYALGIA [None]
  - FOOT FRACTURE [None]
  - INTERVERTEBRAL DISC DEGENERATION [None]
  - LUMBAR SPINAL STENOSIS [None]
  - OSTEOARTHRITIS [None]
  - PERIODONTITIS [None]
  - SLEEP APNOEA SYNDROME [None]
  - SPONDYLOLISTHESIS [None]
